FAERS Safety Report 5530555-5 (Version None)
Quarter: 2007Q4

REPORT INFORMATION
  Report Type: 
  Country: None (occurrence: None)
  Receive Date: 20071130
  Receipt Date: 20071126
  Transmission Date: 20080405
  Serious: Yes (Other)
  Sender: FDA-Public Use
  Company Number: DE-JNJFOC-20071103927

PATIENT
  Sex: Female
  Weight: 74 kg

DRUGS (5)
  1. INVEGA [Suspect]
     Route: 048
  2. INVEGA [Suspect]
     Indication: PSYCHOTIC DISORDER
     Route: 048
  3. TREVILOR [Concomitant]
     Indication: PSYCHOTIC DISORDER
     Route: 065
  4. LYRICA [Concomitant]
     Indication: PSYCHOTIC DISORDER
     Route: 065
  5. ZYPREXA [Concomitant]
     Indication: PSYCHOTIC DISORDER
     Route: 065

REACTIONS (1)
  - LEUKOPENIA [None]
